FAERS Safety Report 9190624 (Version 2)
Quarter: 2013Q1

REPORT INFORMATION
  Report Type: Spontaneous
  Country: GB (occurrence: None)
  Receive Date: 20130325
  Receipt Date: 20130326
  Transmission Date: 20140127
  Serious: Yes (Disabling)
  Sender: FDA-Public Use
  Company Number: AUR-APL-2013-02413

PATIENT
  Age: 25 Year
  Sex: Female
  Weight: 98 kg

DRUGS (9)
  1. MONTELUKAST [Suspect]
     Indication: PRODUCT USED FOR UNKNOWN INDICATION
     Dates: start: 20121129
  2. CLARITHROMYCIN (CLARITHROMYCIN) [Concomitant]
  3. FERROUS SULPHATE (FERROUS SULFATE) [Concomitant]
  4. FOLIC ACID (FOLIC ACID) [Concomitant]
  5. MIRTAZAPINE (MIRTAZAPINE) [Concomitant]
  6. OMEPRAZOLE (OMEPRAZOLE) [Concomitant]
  7. QUETIAPINE (QUETIAPINE) (QUETIAPINE) [Concomitant]
  8. SALBUTAMOL (SALBUTAMOL) [Concomitant]
  9. SERETIDE (SERETIDE/01420901/) [Concomitant]

REACTIONS (1)
  - Lung disorder [None]
